FAERS Safety Report 5339884-1 (Version None)
Quarter: 2007Q2

REPORT INFORMATION
  Report Type: 
  Country: None (occurrence: None)
  Receive Date: 20070529
  Receipt Date: 20070510
  Transmission Date: 20071010
  Serious: Yes (Other)
  Sender: FDA-Public Use
  Company Number: VNL_00569_2007

PATIENT
  Sex: Female

DRUGS (1)
  1. APO-GO (APO-GO) [Suspect]
     Indication: PARKINSON'S DISEASE
     Dosage: (7.1 MG PER HOUR FOR UNKNOWN SUBCUTANEOUS)
     Route: 058

REACTIONS (2)
  - AGGRESSION [None]
  - PARANOIA [None]
